FAERS Safety Report 7979150-9 (Version None)
Quarter: 2011Q4

REPORT INFORMATION
  Report Type: 
  Country: None (occurrence: None)
  Receive Date: 20111130
  Receipt Date: 20111115
  Transmission Date: 20120403
  Serious: Yes (Death, Life-Threatening, Hospitalization, Other)
  Sender: FDA-Public Use
  Company Number: 2011MA016487

PATIENT
  Age: 65 Year
  Sex: Male
  Weight: 81.6475 kg

DRUGS (19)
  1. COREG [Concomitant]
  2. INSPRA [Concomitant]
  3. POTASSIUM CHLORIDE [Concomitant]
  4. TOPROL-XL [Concomitant]
  5. LASIX [Concomitant]
  6. VYTORIN [Concomitant]
  7. AMIODARONE HCL [Concomitant]
  8. NITROGLYCERIN [Concomitant]
  9. AMITRYPTLYLINE [Concomitant]
  10. ELAVIL [Concomitant]
  11. NITROGLYCERIN [Concomitant]
  12. HUMALOG [Concomitant]
  13. LOVENOX [Concomitant]
  14. LOPRESSOR [Concomitant]
  15. ASPIRIN [Concomitant]
  16. ZAROXOLYN [Concomitant]
  17. DIGOXIN [Suspect]
     Indication: CARDIAC FAILURE CONGESTIVE
     Dosage: 0.25 MG;QD;PO
     Route: 048
     Dates: start: 20050101, end: 20071224
  18. IMDUR [Concomitant]
  19. NOVOLOG [Concomitant]

REACTIONS (36)
  - ANHEDONIA [None]
  - DYSPNOEA [None]
  - CONDITION AGGRAVATED [None]
  - HYPOTENSION [None]
  - CARDIOACTIVE DRUG LEVEL ABOVE THERAPEUTIC [None]
  - ANXIETY [None]
  - TOBACCO ABUSE [None]
  - RENAL FAILURE ACUTE [None]
  - RENAL FAILURE CHRONIC [None]
  - EMOTIONAL DISTRESS [None]
  - ARTERIOSCLEROSIS CORONARY ARTERY [None]
  - GENERAL PHYSICAL HEALTH DETERIORATION [None]
  - MULTIPLE INJURIES [None]
  - TOXICITY TO VARIOUS AGENTS [None]
  - WEIGHT INCREASED [None]
  - CHEST DISCOMFORT [None]
  - ATRIAL FIBRILLATION [None]
  - DEVICE MALFUNCTION [None]
  - UNEVALUABLE EVENT [None]
  - OCCULT BLOOD POSITIVE [None]
  - CHRONIC OBSTRUCTIVE PULMONARY DISEASE [None]
  - SYSTOLIC DYSFUNCTION [None]
  - OBSTRUCTIVE UROPATHY [None]
  - NEPHRITIC SYNDROME [None]
  - ATRIAL FLUTTER [None]
  - RENAL FAILURE [None]
  - OEDEMA PERIPHERAL [None]
  - ANGINA UNSTABLE [None]
  - CARDIOMEGALY [None]
  - BUNDLE BRANCH BLOCK LEFT [None]
  - ECONOMIC PROBLEM [None]
  - CARDIAC FAILURE [None]
  - PAIN [None]
  - ISCHAEMIC CARDIOMYOPATHY [None]
  - DIABETES MELLITUS INADEQUATE CONTROL [None]
  - DEVICE BATTERY ISSUE [None]
